FAERS Safety Report 12609535 (Version 1)
Quarter: 2016Q3

REPORT INFORMATION
  Report Type: Spontaneous
  Country: US (occurrence: US)
  Receive Date: 20160801
  Receipt Date: 20160801
  Transmission Date: 20161109
  Serious: No
  Sender: FDA-Public Use
  Company Number: US-TEVA-629308USA

PATIENT
  Age: 35 Year
  Sex: Female
  Weight: 61.29 kg

DRUGS (11)
  1. KLONOPIN [Suspect]
     Active Substance: CLONAZEPAM
     Indication: NERVOUSNESS
     Dosage: 1 MILLIGRAM DAILY;
     Route: 065
     Dates: start: 2006
  2. SKELAXIN [Concomitant]
     Active Substance: METAXALONE
     Indication: POST-TRAUMATIC STRESS DISORDER
  3. ADDERALL XR [Concomitant]
     Active Substance: AMPHETAMINE ASPARTATE\AMPHETAMINE SULFATE\DEXTROAMPHETAMINE SACCHARATE\DEXTROAMPHETAMINE SULFATE
     Indication: ATTENTION DEFICIT/HYPERACTIVITY DISORDER
     Dosage: 60 MILLIGRAM DAILY;
  4. NEURONTIN [Concomitant]
     Active Substance: GABAPENTIN
     Indication: NEURALGIA
     Dosage: 1600 MILLIGRAM DAILY;
  5. COGENTIN [Concomitant]
     Active Substance: BENZTROPINE MESYLATE
     Indication: DYSTONIA
     Dosage: 1 MILLIGRAM DAILY;
     Dates: start: 201510
  6. ATIVAN [Concomitant]
     Active Substance: LORAZEPAM
     Route: 030
  7. SOMA [Suspect]
     Active Substance: CARISOPRODOL
     Indication: TREMOR
     Dosage: 1000 MILLIGRAM DAILY;
     Route: 065
     Dates: start: 20160106
  8. NEURONTIN [Concomitant]
     Active Substance: GABAPENTIN
     Indication: NEURALGIA
     Dosage: 2400 MILLIGRAM DAILY;
     Dates: start: 2009
  9. BACLOFEN. [Suspect]
     Active Substance: BACLOFEN
     Indication: MUSCLE SPASMS
     Route: 065
     Dates: start: 2015, end: 2015
  10. SKELAXIN [Concomitant]
     Active Substance: METAXALONE
     Indication: DYSTONIA
     Dosage: 800 MILLIGRAM DAILY;
     Route: 065
     Dates: start: 2009
  11. SKELAXIN [Concomitant]
     Active Substance: METAXALONE
     Indication: COMPLEX REGIONAL PAIN SYNDROME

REACTIONS (2)
  - Drug ineffective [Unknown]
  - Fatigue [Unknown]

NARRATIVE: CASE EVENT DATE: 20160106
